FAERS Safety Report 4634001-5 (Version None)
Quarter: 2005Q2

REPORT INFORMATION
  Report Type: 
  Country: None (occurrence: None)
  Receive Date: 20050407
  Receipt Date: 20050323
  Transmission Date: 20051028
  Serious: Yes (Hospitalization)
  Sender: FDA-Public Use
  Company Number: 2005-BP-01489BP

PATIENT
  Age: 80 Year
  Sex: Female

DRUGS (12)
  1. FLOMAX [Suspect]
     Indication: URINARY TRACT INFECTION
     Dosage: 0.4 MG, PO
     Route: 048
  2. PREMARIN [Concomitant]
  3. LASIX [Concomitant]
  4. TIAZAC [Concomitant]
  5. LEVSIN (HYOSCYAMINE SULFATE) [Concomitant]
  6. CELEBREX [Concomitant]
  7. IMDUR [Concomitant]
  8. TRANXENE [Concomitant]
  9. NEXIUM [Concomitant]
  10. MICRO-K (POTASSIUM CHLORIDE) [Concomitant]
  11. CELEXA [Concomitant]
  12. LIBRAX [Concomitant]

REACTIONS (4)
  - BLOOD PRESSURE ABNORMAL [None]
  - CARDIAC FAILURE CONGESTIVE [None]
  - CYSTITIS GLANDULARIS [None]
  - URINARY RETENTION [None]
